FAERS Safety Report 17243527 (Version 2)
Quarter: 2020Q1

REPORT INFORMATION
  Report Type: Spontaneous
  Country: US (occurrence: US)
  Receive Date: 20200107
  Receipt Date: 20200309
  Transmission Date: 20200409
  Serious: Yes (Other)
  Sender: FDA-Public Use
  Company Number: US-SHIRE-US202000215

PATIENT
  Age: 51 Year

DRUGS (1)
  1. HEMOFIL [Suspect]
     Active Substance: ANTIHEMOPHILIC FACTOR HUMAN
     Indication: PRODUCT USED FOR UNKNOWN INDICATION
     Dosage: 3600 INTERNATIONAL UNIT, UNKNOWN
     Route: 042

REACTIONS (1)
  - Haemarthrosis [Recovered/Resolved]

NARRATIVE: CASE EVENT DATE: 20200102
